FAERS Safety Report 18870432 (Version 2)
Quarter: 2021Q2

REPORT INFORMATION
  Report Type: Spontaneous
  Country: US (occurrence: US)
  Receive Date: 20210209
  Receipt Date: 20210614
  Transmission Date: 20210717
  Serious: Yes (Other)
  Sender: FDA-Public Use
  Company Number: US-GILEAD-2021-0515609

PATIENT
  Sex: Female
  Weight: 91.16 kg

DRUGS (44)
  1. ISENTRESS [Concomitant]
     Active Substance: RALTEGRAVIR POTASSIUM
  2. SERTRALINE [Concomitant]
     Active Substance: SERTRALINE HYDROCHLORIDE
  3. VOLTAREN ACTI [Concomitant]
     Active Substance: DICLOFENAC POTASSIUM
  4. DIOVAN [Concomitant]
     Active Substance: VALSARTAN
  5. VIREAD [Suspect]
     Active Substance: TENOFOVIR DISOPROXIL FUMARATE
     Dosage: UNK
     Route: 048
     Dates: start: 20011026, end: 2009
  6. TRAZODONE [Concomitant]
     Active Substance: TRAZODONE HYDROCHLORIDE
  7. AMBIEN [Concomitant]
     Active Substance: ZOLPIDEM TARTRATE
  8. RESTORIL [Concomitant]
     Active Substance: TEMAZEPAM
  9. ACTOS [Concomitant]
     Active Substance: PIOGLITAZONE HYDROCHLORIDE
  10. NORVIR [Concomitant]
     Active Substance: RITONAVIR
  11. REYATAZ [Concomitant]
     Active Substance: ATAZANAVIR SULFATE
  12. SELZENTRY [Concomitant]
     Active Substance: MARAVIROC
  13. ALBUTEROL HFA [Concomitant]
     Active Substance: ALBUTEROL SULFATE
  14. BACLOFEN. [Concomitant]
     Active Substance: BACLOFEN
  15. LASIX P [Concomitant]
     Active Substance: FUROSEMIDE
  16. LORATADINE. [Concomitant]
     Active Substance: LORATADINE
  17. MELOXICAM. [Concomitant]
     Active Substance: MELOXICAM
  18. OMEPRAZOLE. [Concomitant]
     Active Substance: OMEPRAZOLE
  19. ULTRAM ER [Concomitant]
     Active Substance: TRAMADOL HYDROCHLORIDE
  20. XANAX [Concomitant]
     Active Substance: ALPRAZOLAM
  21. VIREAD [Suspect]
     Active Substance: TENOFOVIR DISOPROXIL FUMARATE
     Indication: HIV INFECTION
     Dosage: UNK
     Route: 048
     Dates: start: 2006
  22. TRUVADA [Suspect]
     Active Substance: EMTRICITABINE\TENOFOVIR DISOPROXIL FUMARATE
     Indication: HIV INFECTION
     Dosage: UNK
     Route: 048
     Dates: start: 2006
  23. ESTROGEN [Concomitant]
     Active Substance: ESTROGENS
  24. FLECAINIDE [Concomitant]
     Active Substance: FLECAINIDE
  25. TRUVADA [Suspect]
     Active Substance: EMTRICITABINE\TENOFOVIR DISOPROXIL FUMARATE
     Dosage: UNK
     Route: 048
     Dates: start: 2011, end: 202101
  26. COMBIVIR [Concomitant]
     Active Substance: LAMIVUDINE\ZIDOVUDINE
  27. COMBIVENT [Concomitant]
     Active Substance: ALBUTEROL SULFATE\IPRATROPIUM BROMIDE
  28. LEXAPRO [Concomitant]
     Active Substance: ESCITALOPRAM OXALATE
  29. GABAPENTIN. [Concomitant]
     Active Substance: GABAPENTIN
  30. NEURONTIN [Concomitant]
     Active Substance: GABAPENTIN
  31. DESCOVY [Concomitant]
     Active Substance: EMTRICITABINE\TENOFOVIR ALAFENAMIDE FUMARATE
  32. DETROL [Concomitant]
     Active Substance: TOLTERODINE TARTRATE
  33. COLCHICINE. [Concomitant]
     Active Substance: COLCHICINE
  34. LYRICA [Concomitant]
     Active Substance: PREGABALIN
  35. METFORMIN [Concomitant]
     Active Substance: METFORMIN HYDROCHLORIDE
  36. ADVAIR HFA [Concomitant]
     Active Substance: FLUTICASONE PROPIONATE\SALMETEROL XINAFOATE
  37. FLUTICASONE. [Concomitant]
     Active Substance: FLUTICASONE
  38. PREMARIN [Concomitant]
     Active Substance: ESTROGENS, CONJUGATED
  39. FLEXERIL [CEFIXIME] [Concomitant]
     Active Substance: CEFIXIME
  40. PERCOCET [OXYCODONE HYDROCHLORIDE;OXYCODONE TEREPHTHALATE;PARACETAMOL] [Concomitant]
     Active Substance: ACETAMINOPHEN\OXYCODONE HYDROCHLORIDE\OXYCODONE TEREPHTHALATE
  41. DILTIAZEM. [Concomitant]
     Active Substance: DILTIAZEM
  42. DIGOXIN. [Concomitant]
     Active Substance: DIGOXIN
  43. ALLOPURINOL. [Concomitant]
     Active Substance: ALLOPURINOL
  44. ZANAFLEX [Concomitant]
     Active Substance: TIZANIDINE HYDROCHLORIDE

REACTIONS (7)
  - Renal injury [Unknown]
  - Emotional distress [Unknown]
  - Renal impairment [Not Recovered/Not Resolved]
  - Proteinuria [Not Recovered/Not Resolved]
  - Anhedonia [Unknown]
  - Pain [Unknown]
  - Anxiety [Unknown]

NARRATIVE: CASE EVENT DATE: 2016
